FAERS Safety Report 10337257 (Version 1)
Quarter: 2014Q3

REPORT INFORMATION
  Report Type: Spontaneous
  Country: AU (occurrence: AU)
  Receive Date: 20140723
  Receipt Date: 20140723
  Transmission Date: 20150326
  Serious: Yes (Other)
  Sender: FDA-Public Use
  Company Number: AU-BIOMARINAP-AU-2014-103732

PATIENT
  Sex: Male
  Weight: 40.8 kg

DRUGS (3)
  1. ALDURAZYME [Suspect]
     Active Substance: LARONIDASE
     Dosage: UNK, QOW
     Route: 042
  2. ALDURAZYME [Suspect]
     Active Substance: LARONIDASE
     Indication: MUCOPOLYSACCHARIDOSIS I
     Dosage: UNK, QW
     Route: 042
  3. NORMAL SALINE [Concomitant]
     Active Substance: SODIUM CHLORIDE
     Indication: PRODUCT USED FOR UNKNOWN INDICATION

REACTIONS (25)
  - Asthma [Unknown]
  - Emphysema [Unknown]
  - Hand deformity [Unknown]
  - Fine motor delay [Unknown]
  - Mitral valve repair [Unknown]
  - Left ventricular dysfunction [Unknown]
  - Muscle contracture [Unknown]
  - Joint range of motion decreased [Unknown]
  - Hepatomegaly [Unknown]
  - Spinal osteoarthritis [Unknown]
  - Electrocardiogram abnormal [Unknown]
  - Osteoporosis [Unknown]
  - Pulmonary hypertension [Unknown]
  - Foot deformity [Unknown]
  - Osteopenia [Unknown]
  - Arthralgia [Unknown]
  - Congenital osteodystrophy [Unknown]
  - Umbilical hernia [Unknown]
  - Osteoarthritis [Unknown]
  - Obstructive airways disorder [Unknown]
  - Dacryostenosis acquired [Unknown]
  - Gait disturbance [Unknown]
  - Pleurodesis [Unknown]
  - Pneumothorax [Unknown]
  - Gross motor delay [Unknown]
